FAERS Safety Report 18649651 (Version 1)
Quarter: 2020Q4

REPORT INFORMATION
  Report Type: Spontaneous
  Country: US (occurrence: US)
  Receive Date: 20201222
  Receipt Date: 20201222
  Transmission Date: 20210114
  Serious: Yes (Other)
  Sender: FDA-Public Use
  Company Number: US-SUN PHARMACEUTICAL INDUSTRIES LTD-2020R1-271942

PATIENT
  Age: 16 Year
  Sex: Female

DRUGS (3)
  1. HYDROXYCHLOROQUINE [Suspect]
     Active Substance: HYDROXYCHLOROQUINE
     Indication: COMPLEMENT FACTOR DECREASED
     Dosage: 200 MILLIGRAM, DAILY
     Route: 065
  2. MYCOPHENOLATE MOFETIL. [Suspect]
     Active Substance: MYCOPHENOLATE MOFETIL
     Indication: COMPLEMENT FACTOR DECREASED
     Dosage: 1000 MILLIGRAM, BID
     Route: 065
  3. PREDNISONE. [Suspect]
     Active Substance: PREDNISONE
     Indication: COMPLEMENT FACTOR DECREASED
     Dosage: 30 MILLIGRAM, BID
     Route: 065

REACTIONS (3)
  - Swelling [Unknown]
  - Ear pain [Unknown]
  - Neck pain [Unknown]
